FAERS Safety Report 15374102 (Version 1)
Quarter: 2018Q3

REPORT INFORMATION
  Report Type: Spontaneous
  Country: US (occurrence: US)
  Receive Date: 20180905
  Receipt Date: 20180905
  Transmission Date: 20181010
  Serious: Yes (Disabling, Other)
  Sender: FDA-Public Use
  Company Number: None

PATIENT
  Age: 56 Year
  Sex: Male
  Weight: 110.25 kg

DRUGS (10)
  1. VALSARTAN AND HYDROCHLOROTHIAZIDE [Concomitant]
     Active Substance: HYDROCHLOROTHIAZIDE\VALSARTAN
  2. HYDROMORPHONE [Concomitant]
     Active Substance: HYDROMORPHONE
  3. FLEBOGAMMA [Suspect]
     Active Substance: HUMAN IMMUNOGLOBULIN G
     Indication: CHRONIC INFLAMMATORY DEMYELINATING POLYRADICULONEUROPATHY
     Dosage: ?          QUANTITY:10 GRAMS;OTHER FREQUENCY:2 DAYS PER 3 WEEKS;OTHER ROUTE:INFUSED INTO MEDIPORT?
     Dates: start: 20180823, end: 20180824
  4. MEDIPORT [Concomitant]
  5. DEXILANT [Concomitant]
     Active Substance: DEXLANSOPRAZOLE
  6. TESTOSTERONE CYPIONAE [Concomitant]
  7. TIZANIDINE. [Concomitant]
     Active Substance: TIZANIDINE
  8. MULTI?VITMINS [Concomitant]
  9. VITAMIN B COMPLEX [Concomitant]
     Active Substance: CYANOCOBALAMIN\DEXPANTHENOL\NIACINAMIDE\PYRIDOXINE HYDROCHLORIDE\RIBOFLAVIN 5^-PHOSPHATE SODIUM\THIAMINE HYDROCHLORIDE\VITAMIN B COMPLEX
  10. CYANOCOBALAMIN. [Concomitant]
     Active Substance: CYANOCOBALAMIN

REACTIONS (17)
  - Pain in extremity [None]
  - Weight bearing difficulty [None]
  - Shock [None]
  - Pain [None]
  - Drug dose omission [None]
  - Hypoaesthesia [None]
  - Urinary incontinence [None]
  - Fall [None]
  - Paresis [None]
  - Infusion related reaction [None]
  - Disease progression [None]
  - Muscle spasms [None]
  - Condition aggravated [None]
  - Muscle strain [None]
  - Muscular weakness [None]
  - Contusion [None]
  - Musculoskeletal disorder [None]

NARRATIVE: CASE EVENT DATE: 20180824
